FAERS Safety Report 13993528 (Version 6)
Quarter: 2020Q4

REPORT INFORMATION
  Report Type: Spontaneous
  Country: IT (occurrence: IT)
  Receive Date: 20170920
  Receipt Date: 20201228
  Transmission Date: 20210113
  Serious: Yes (Other)
  Sender: FDA-Public Use
  Company Number: IT-MYLANLABS-2017M1055643

PATIENT
  Age: 13 Year
  Sex: Female

DRUGS (18)
  1. QUETIAPINE. [Suspect]
     Active Substance: QUETIAPINE
     Indication: AFFECTIVE DISORDER
     Dosage: 100 MG, QD, OFF LABEL USE, FILM COATED TABLET
     Route: 048
  2. QUETIAPINE. [Suspect]
     Active Substance: QUETIAPINE
     Indication: INTELLECTUAL DISABILITY
  3. VALPROIC ACID. [Suspect]
     Active Substance: VALPROIC ACID
     Indication: PSYCHIATRIC SYMPTOM
  4. VALPROIC ACID. [Suspect]
     Active Substance: VALPROIC ACID
     Indication: BEHAVIOUR DISORDER
  5. QUETIAPINE. [Suspect]
     Active Substance: QUETIAPINE
     Indication: AGGRESSION
  6. RISPERIDONE. [Suspect]
     Active Substance: RISPERIDONE
     Indication: NEUROPSYCHIATRIC SYMPTOMS
     Dosage: 0.5 MG, UNK
     Route: 065
  7. RISPERIDONE. [Suspect]
     Active Substance: RISPERIDONE
     Indication: PSYCHIATRIC SYMPTOM
     Dosage: 2 MG, QD
     Route: 048
  8. ARIPIPRAZOLE. [Suspect]
     Active Substance: ARIPIPRAZOLE
     Indication: INTELLECTUAL DISABILITY
  9. QUETIAPINE. [Suspect]
     Active Substance: QUETIAPINE
     Indication: NEUROPSYCHIATRIC SYMPTOMS
     Dosage: 300 MG, QD, 1 MG, QD (1 DF=100 MG/DAY UP TO 300 MG/DAY), FILM-COATED TABLET
     Route: 048
  10. ARIPIPRAZOLE. [Suspect]
     Active Substance: ARIPIPRAZOLE
     Indication: PSYCHIATRIC SYMPTOM
  11. VALPROIC ACID. [Suspect]
     Active Substance: VALPROIC ACID
     Indication: NEUROPSYCHIATRIC SYMPTOMS
     Dosage: 7.5 MILLIGRAM, QD
     Route: 065
  12. TOPIRAMATE. [Suspect]
     Active Substance: TOPIRAMATE
     Indication: NEUROPSYCHIATRIC SYMPTOMS
     Dosage: UNK
  13. TOPIRAMATE. [Suspect]
     Active Substance: TOPIRAMATE
     Indication: PSYCHIATRIC SYMPTOM
  14. ARIPIPRAZOLE. [Suspect]
     Active Substance: ARIPIPRAZOLE
     Indication: AFFECTIVE DISORDER
     Dosage: 7.5 MG, QD
  15. ABILIFY [Suspect]
     Active Substance: ARIPIPRAZOLE
     Indication: NEUROPSYCHIATRIC SYMPTOMS
     Dosage: 7.5 MG, QD
     Route: 048
  16. ABILIFY [Suspect]
     Active Substance: ARIPIPRAZOLE
     Indication: PSYCHIATRIC SYMPTOM
     Dosage: UNK
     Route: 048
  17. QUETIAPINE. [Suspect]
     Active Substance: QUETIAPINE
     Indication: MOOD SWINGS
  18. ABILIFY [Suspect]
     Active Substance: ARIPIPRAZOLE
     Indication: AFFECTIVE DISORDER
     Dosage: 8 MILLIGRAM, QD
     Route: 048

REACTIONS (12)
  - Dysarthria [Recovered/Resolved]
  - Product use issue [Unknown]
  - Off label use [Unknown]
  - Drug ineffective [Unknown]
  - Incorrect dose administered [Unknown]
  - Treatment failure [Unknown]
  - Product use in unapproved indication [Unknown]
  - Condition aggravated [Recovering/Resolving]
  - Tardive dyskinesia [Recovered/Resolved]
  - Oromandibular dystonia [Recovered/Resolved]
  - Lip disorder [Recovered/Resolved]
  - Dyskinesia [Recovered/Resolved]
